FAERS Safety Report 6005042-0 (Version None)
Quarter: 2008Q4

REPORT INFORMATION
  Report Type: 
  Country: None (occurrence: None)
  Receive Date: 20081216
  Receipt Date: 20080310
  Transmission Date: 20090506
  Serious: Yes (Hospitalization)
  Sender: FDA-Public Use
  Company Number: US-BAUSCH-2008BL001070

PATIENT
  Age: 10 Year
  Sex: Female
  Weight: 48 kg

DRUGS (3)
  1. SULFACETAMIDE SODIUM [Suspect]
     Indication: CONJUNCTIVITIS
     Route: 047
     Dates: start: 20021209, end: 20021201
  2. TYLENOL /USA/ [Concomitant]
     Indication: PYREXIA
     Route: 048
     Dates: start: 20021202
  3. ADVIL LIQUI-GELS [Concomitant]
     Indication: PYREXIA
     Route: 048
     Dates: start: 20021209

REACTIONS (7)
  - BLOOD OSMOLARITY DECREASED [None]
  - DEHYDRATION [None]
  - DIARRHOEA [None]
  - HEPATOMEGALY [None]
  - HYPONATRAEMIA [None]
  - LIVER FUNCTION TEST ABNORMAL [None]
  - TOXIC EPIDERMAL NECROLYSIS [None]
